FAERS Safety Report 5299221-8 (Version None)
Quarter: 2007Q2

REPORT INFORMATION
  Report Type: 
  Country: None (occurrence: None)
  Receive Date: 20070411
  Receipt Date: 20070411
  Transmission Date: 20071010
  Serious: Yes (Life-Threatening, Hospitalization)
  Sender: FDA-Public Use
  Company Number: None

PATIENT
  Age: 62 Year
  Sex: Female
  Weight: 73.4827 kg

DRUGS (10)
  1. AZITHROMYCIN [Suspect]
     Indication: INFECTION
     Dosage: 250  DAILY  PO
     Route: 048
     Dates: start: 20070222
  2. LOSARTAN POTASSIUM [Suspect]
     Indication: HYPERTENSION
     Dosage: 100 MG  DAILY  PO
     Route: 048
     Dates: start: 20061026
  3. ASPIRIN [Concomitant]
  4. LASIX [Concomitant]
  5. GABAPENTIN [Concomitant]
  6. METOPROLOL SUCCINATE [Concomitant]
  7. VYTORIN [Concomitant]
  8. TEGRETOL [Concomitant]
  9. FELODIPINE [Concomitant]
  10. PROZAC [Concomitant]

REACTIONS (3)
  - ILL-DEFINED DISORDER [None]
  - PHARYNGEAL OEDEMA [None]
  - SWOLLEN TONGUE [None]
